FAERS Safety Report 21603862 (Version 2)
Quarter: 2022Q4

REPORT INFORMATION
  Report Type: Spontaneous
  Country: GB (occurrence: GB)
  Receive Date: 20221116
  Receipt Date: 20221219
  Transmission Date: 20230113
  Serious: Yes (Other)
  Sender: FDA-Public Use
  Company Number: GB-PFM-2022-08174

PATIENT
  Age: 72 Year
  Sex: Female
  Weight: 80.1 kg

DRUGS (3)
  1. BRAFTOVI [Suspect]
     Active Substance: ENCORAFENIB
     Indication: Colorectal cancer
     Dosage: 300 MG DAILY
     Route: 048
     Dates: start: 20220914
  2. BRAFTOVI [Suspect]
     Active Substance: ENCORAFENIB
     Dosage: 225 MG DAILY
     Route: 048
     Dates: start: 20221123
  3. CETUXIMAB [Concomitant]
     Active Substance: CETUXIMAB
     Indication: Colorectal cancer
     Dosage: 2 DOSES RESULTING IN RAISES IN AMYLASE AS OUTLINED ABOVE
     Route: 065
     Dates: start: 20220914

REACTIONS (1)
  - Amylase increased [Not Recovered/Not Resolved]

NARRATIVE: CASE EVENT DATE: 20221010
